FAERS Safety Report 17696546 (Version 1)
Quarter: 2020Q2

REPORT INFORMATION
  Report Type: Spontaneous
  Country: US (occurrence: US)
  Receive Date: 20200423
  Receipt Date: 20200423
  Transmission Date: 20200714
  Serious: Yes (Other)
  Sender: FDA-Public Use
  Company Number: US-NAPPMUNDI-USA-2020-0150810

PATIENT
  Sex: Male

DRUGS (6)
  1. MORPHINE SULFATE EXTENDED-RELEASE TABLETS (RHODES 74-769, 74-862) [Suspect]
     Active Substance: MORPHINE SULFATE
     Indication: BACK PAIN
     Route: 048
  2. PERCOCET                           /00446701/ [Suspect]
     Active Substance: ACETAMINOPHEN\OXYCODONE HYDROCHLORIDE\OXYCODONE TEREPHTHALATE
     Indication: BACK PAIN
     Route: 065
  3. OXYCONTIN [Suspect]
     Active Substance: OXYCODONE HYDROCHLORIDE
     Indication: BACK PAIN
     Route: 048
  4. BUPRENORPHINE TRANSDERMAL PATCH (SIMILAR TO NDA 21-306) [Suspect]
     Active Substance: BUPRENORPHINE
     Indication: BACK PAIN
     Dosage: UNK, WEEKLY
     Route: 062
  5. OXYCODONE/ ACETAMINOPHEN TABLETS [Suspect]
     Active Substance: ACETAMINOPHEN\OXYCODONE HYDROCHLORIDE
     Indication: BACK PAIN
     Route: 048
  6. FENTANYL CITRATE. [Suspect]
     Active Substance: FENTANYL CITRATE
     Indication: BACK PAIN
     Route: 062

REACTIONS (12)
  - Insomnia [Unknown]
  - Drug withdrawal syndrome [Unknown]
  - Fatigue [Unknown]
  - Impaired work ability [Unknown]
  - General physical health deterioration [Unknown]
  - Sinus disorder [Unknown]
  - Hyperhidrosis [Unknown]
  - Sedation [Unknown]
  - Mental impairment [Unknown]
  - Drug dependence [Unknown]
  - Chills [Unknown]
  - Irritability [Unknown]
